FAERS Safety Report 23806598 (Version 1)
Quarter: 2024Q2

REPORT INFORMATION
  Report Type: Spontaneous
  Country: JP (occurrence: JP)
  Receive Date: 20240502
  Receipt Date: 20240502
  Transmission Date: 20240716
  Serious: Yes (Other)
  Sender: FDA-Public Use
  Company Number: JP-DSJP-DSJ-2022-113429

PATIENT

DRUGS (5)
  1. DENOSUMAB [Suspect]
     Active Substance: DENOSUMAB
     Indication: Osteoporosis
     Dosage: 60 MILLIGRAM
     Route: 065
  2. MODERNA COVID-19 VACCINE [Suspect]
     Active Substance: ELASOMERAN
     Indication: Product used for unknown indication
     Dosage: UNK
     Route: 065
  3. UNSPECIFIED INGREDIENT [Suspect]
     Active Substance: UNSPECIFIED INGREDIENT
     Indication: Product used for unknown indication
     Dosage: UNK
     Route: 048
  4. COMIRNATY (TOZINAMERAN) [Concomitant]
     Active Substance: TOZINAMERAN
     Indication: Product used for unknown indication
     Dosage: UNK
     Route: 065
  5. COMIRNATY (TOZINAMERAN) [Concomitant]
     Active Substance: TOZINAMERAN
     Dosage: UNK
     Route: 065

REACTIONS (12)
  - Diabetes mellitus [Not Recovered/Not Resolved]
  - Faeces soft [Unknown]
  - Large intestine polyp [Unknown]
  - Dental caries [Not Recovered/Not Resolved]
  - Gingivitis [Not Recovered/Not Resolved]
  - Tooth disorder [Not Recovered/Not Resolved]
  - Spinal deformity [Unknown]
  - Back pain [Unknown]
  - Hypoaesthesia [Unknown]
  - Animal scratch [Unknown]
  - Pain in extremity [Recovered/Resolved]
  - Immunisation reaction [Recovered/Resolved]

NARRATIVE: CASE EVENT DATE: 20220406
